FAERS Safety Report 8954781 (Version 1)
Quarter: 2012Q4

REPORT INFORMATION
  Report Type: Spontaneous
  Country: US (occurrence: None)
  Receive Date: 20121204
  Receipt Date: 20121204
  Transmission Date: 20130627
  Serious: Yes (Other)
  Sender: FDA-Public Use
  Company Number: None

PATIENT
  Sex: Male

DRUGS (4)
  1. TOPAMAX [Suspect]
     Indication: SEIZURES
     Route: 048
     Dates: start: 20081027, end: 20090119
  2. LAMICTAL [Concomitant]
  3. BANZEL [Suspect]
  4. KLONOPIN [Suspect]

REACTIONS (3)
  - Convulsion [None]
  - Condition aggravated [None]
  - Product substitution issue [None]
